FAERS Safety Report 4356619-X (Version None)
Quarter: 2004Q2

REPORT INFORMATION
  Report Type: 
  Country: None (occurrence: None)
  Receive Date: 20040506
  Receipt Date: 20040426
  Transmission Date: 20050107
  Serious: Yes (Death, Hospitalization, Other)
  Sender: FDA-Public Use
  Company Number: 2004021978

PATIENT
  Age: 76 Year
  Sex: Male

DRUGS (5)
  1. SORTIS (ATORVASTATIN) [Suspect]
     Indication: HYPERCHOLESTEROLAEMIA
     Dosage: 60 MG DAILY, ORAL
     Route: 048
     Dates: start: 20021201, end: 20040317
  2. NORVASC [Suspect]
     Indication: HYPERTONIA
     Dosage: 5 MG DAILY, ORAL
     Route: 048
  3. METFORMIN HCL [Concomitant]
  4. ACETYLSALICYLIC ACID SRT [Concomitant]
  5. ALLOPURINOL [Concomitant]

REACTIONS (5)
  - BRONCHOPNEUMONIA [None]
  - CHOLESTASIS [None]
  - HEPATITIS [None]
  - MYOCARDIAL INFARCTION [None]
  - MYOSITIS [None]
